FAERS Safety Report 12807268 (Version 1)
Quarter: 2016Q4

REPORT INFORMATION
  Report Type: Spontaneous
  Country: FR (occurrence: FR)
  Receive Date: 20161004
  Receipt Date: 20161004
  Transmission Date: 20170207
  Serious: Yes (Hospitalization)
  Sender: FDA-Public Use
  Company Number: FR-PFIZER INC-2016459491

PATIENT
  Age: 58 Year
  Sex: Male

DRUGS (15)
  1. TIVICAY [Concomitant]
     Active Substance: DOLUTEGRAVIR SODIUM
     Dosage: UNK
     Dates: start: 20160217
  2. TRIUMEQ [Concomitant]
     Active Substance: ABACAVIR SULFATE\DOLUTEGRAVIR SODIUM\LAMIVUDINE
     Indication: HIV INFECTION
     Dosage: UNK
     Dates: start: 201504, end: 20160217
  3. NORVIR [Concomitant]
     Active Substance: RITONAVIR
     Indication: HIV INFECTION
     Dosage: UNK
     Dates: start: 201504
  4. ANSATIPINE [Suspect]
     Active Substance: RIFABUTIN
     Indication: LYMPH NODE TUBERCULOSIS
     Dosage: UNK
     Route: 048
     Dates: start: 20160217, end: 20160305
  5. KEPPRA [Suspect]
     Active Substance: LEVETIRACETAM
     Dosage: UNK
     Route: 048
     Dates: start: 20160212, end: 20160305
  6. PREZISTA [Concomitant]
     Active Substance: DARUNAVIR ETHANOLATE
     Indication: HIV INFECTION
     Dosage: UNK
     Dates: start: 201504
  7. RIFATER [Concomitant]
     Active Substance: ISONIAZID\PYRAZINAMIDE\RIFAMPIN
     Indication: LYMPH NODE TUBERCULOSIS
     Dosage: 5 DF, DAILY
     Dates: start: 20160213, end: 20160217
  8. RIMIFON [Suspect]
     Active Substance: ISONIAZID
     Dosage: UNK
     Route: 048
     Dates: start: 20160217, end: 20160305
  9. RISPERDAL [Concomitant]
     Active Substance: RISPERIDONE
  10. ETHAMBUTOL [Concomitant]
     Active Substance: ETHAMBUTOL HYDROCHLORIDE
     Indication: LYMPH NODE TUBERCULOSIS
     Dosage: 2 DF, DAILY
     Dates: start: 20160213, end: 20160217
  11. MYAMBUTOL [Suspect]
     Active Substance: ETHAMBUTOL HYDROCHLORIDE
     Dosage: 2 DF, 1X/DAY
     Route: 048
     Dates: start: 20160217, end: 20160305
  12. CELSENTRI [Concomitant]
     Active Substance: MARAVIROC
     Indication: HIV INFECTION
     Dosage: UNK
     Dates: start: 201504
  13. PIRILENE [Suspect]
     Active Substance: PYRAZINAMIDE
     Dosage: 2 DF, 1X/DAY
     Route: 048
     Dates: start: 20160217, end: 20160305
  14. EPIVIR [Concomitant]
     Active Substance: LAMIVUDINE
     Dosage: UNK
     Dates: start: 20160217
  15. VALIUM [Concomitant]
     Active Substance: DIAZEPAM

REACTIONS (1)
  - Drug reaction with eosinophilia and systemic symptoms [Recovered/Resolved]

NARRATIVE: CASE EVENT DATE: 20160301
